FAERS Safety Report 22399987 (Version 1)
Quarter: 2023Q2

REPORT INFORMATION
  Report Type: Report from Study
  Country: IT (occurrence: IT)
  Receive Date: 20230602
  Receipt Date: 20230602
  Transmission Date: 20230721
  Serious: Yes (Hospitalization)
  Sender: FDA-Public Use
  Company Number: None

PATIENT
  Age: 27 Year
  Sex: Male

DRUGS (6)
  1. QUETIAPINE [Suspect]
     Active Substance: QUETIAPINE
     Indication: Product used for unknown indication
     Dosage: 6 GRAM,TOTAL,(DOSE: 6 UNIT: GRAMS,FREQUENCY:TOTAL)
     Route: 048
  2. QUETIAPINE [Suspect]
     Active Substance: QUETIAPINE
     Dosage: 500 MG,TOTAL,(DOSE:500 UNIT: MG, FREQUENCY: TOTAL)
     Route: 048
  3. QUETIAPINE [Suspect]
     Active Substance: QUETIAPINE
     Dosage: 200 MG,TOTAL,(DOSE:200 UNIT: MG, FREQUENCY: TOTAL)
     Route: 048
  4. CITALOPRAM [Suspect]
     Active Substance: CITALOPRAM HYDROBROMIDE
     Indication: Product used for unknown indication
     Dosage: 280 MG,TOTAL,(DOSE:280 UNIT:MG, FREQUENCY: TOTAL)
     Route: 048
  5. ZOLPIDEM TARTRATE [Suspect]
     Active Substance: ZOLPIDEM TARTRATE
     Indication: Product used for unknown indication
     Dosage: 210 MG,TOTAL,(DOSE:210 UNIT: MG, FREQUENCY: TOTAL)
     Route: 048
  6. TAVOR (LORAZEPAM) [Suspect]
     Active Substance: LORAZEPAM
     Indication: Product used for unknown indication
     Dosage: 40 MG,TOTAL,(DOSE: 40 UNIT: MG, FREQUENCY: TOTAL)
     Route: 048

REACTIONS (8)
  - Disorganised speech [Recovered/Resolved]
  - Hypoxia [Recovered/Resolved]
  - Disorientation [Recovered/Resolved]
  - Pneumonitis chemical [Recovered/Resolved]
  - Inflammation [Recovered/Resolved]
  - Rhabdomyolysis [Recovered/Resolved]
  - Pyrexia [Recovered/Resolved]
  - Overdose [Recovered/Resolved]

NARRATIVE: CASE EVENT DATE: 20220720
